FAERS Safety Report 8064178-3 (Version None)
Quarter: 2012Q1

REPORT INFORMATION
  Report Type: 
  Country: None (occurrence: None)
  Receive Date: 20120123
  Receipt Date: 20120116
  Transmission Date: 20120608
  Serious: Yes (Other)
  Sender: FDA-Public Use
  Company Number: CN-ROXANE LABORATORIES, INC.-2012-RO-00482RO

PATIENT
  Age: 36 Year
  Sex: Female

DRUGS (4)
  1. EPIRUBICIN [Suspect]
     Indication: BREAST CANCER STAGE III
  2. CYCLOPHOSPHAMIDE [Suspect]
     Indication: BREAST CANCER STAGE III
  3. NEUPOGEN [Suspect]
     Indication: NEUTROPENIA
     Route: 058
  4. DOCETAXEL [Suspect]
     Indication: BREAST CANCER STAGE III

REACTIONS (2)
  - NEUTROPENIA [None]
  - LYMPHADENOPATHY [None]
